FAERS Safety Report 21916848 (Version 1)
Quarter: 2023Q1

REPORT INFORMATION
  Report Type: Spontaneous
  Country: None (occurrence: GB)
  Receive Date: 20230126
  Receipt Date: 20230126
  Transmission Date: 20230417
  Serious: Yes (Hospitalization)
  Sender: FDA-Public Use
  Company Number: GB-B.Braun Medical Inc.-2137091

PATIENT
  Age: 77 Year
  Sex: Female

DRUGS (27)
  1. METRONIDAZOLE [Suspect]
     Active Substance: METRONIDAZOLE
  2. ALLOPURINOL [Concomitant]
     Active Substance: ALLOPURINOL
  3. CHLORTHALIDONE [Concomitant]
     Active Substance: CHLORTHALIDONE
  4. AMOXICILLIN\CLAVULANATE POTASSIUM [Concomitant]
     Active Substance: AMOXICILLIN\CLAVULANATE POTASSIUM
  5. DEXAMETHASONE [Concomitant]
     Active Substance: DEXAMETHASONE
  6. DOMPERIDONE [Concomitant]
     Active Substance: DOMPERIDONE
  7. ENOXAPARIN SODIUM [Concomitant]
     Active Substance: ENOXAPARIN SODIUM
  8. GAVISCON [Concomitant]
     Active Substance: ALUMINUM HYDROXIDE\MAGNESIUM CARBONATE
  9. GLUCOPHAGE [Concomitant]
     Active Substance: METFORMIN HYDROCHLORIDE
  10. METFORMIN HYDROCHLORIDE [Concomitant]
     Active Substance: METFORMIN HYDROCHLORIDE
  11. GLUCOPHAGE XR [Concomitant]
     Active Substance: METFORMIN HYDROCHLORIDE
  12. HUMALOG [Concomitant]
     Active Substance: INSULIN LISPRO
  13. INSULIN LISPRO [Concomitant]
     Active Substance: INSULIN LISPRO
  14. ISOPHANE INSULIN [Concomitant]
     Active Substance: INSULIN NOS
  15. LEVOTHYROXINE [Concomitant]
     Active Substance: LEVOTHYROXINE
  16. NYSTATIN [Concomitant]
     Active Substance: NYSTATIN
  17. ONDANSETRON [Concomitant]
     Active Substance: ONDANSETRON
  18. OXYCODONE. [Concomitant]
     Active Substance: OXYCODONE HYDROCHLORIDE
  19. PANTOPRAZOLE SODIUM [Suspect]
     Active Substance: PANTOPRAZOLE SODIUM
  20. ACETAMINOPHEN [Concomitant]
     Active Substance: ACETAMINOPHEN
  21. SODIUM PHOSPHATE [Concomitant]
     Active Substance: SODIUM PHOSPHATE
  22. ATEZOLIZUMAB [Suspect]
     Active Substance: ATEZOLIZUMAB
  23. AMOXICILLIN\CLAVULANATE POTASSIUM [Suspect]
     Active Substance: AMOXICILLIN\CLAVULANATE POTASSIUM
  24. CARBOPLATIN [Suspect]
     Active Substance: CARBOPLATIN
  25. ETOPOSIDE [Suspect]
     Active Substance: ETOPOSIDE
  26. GENTAMICIN [Suspect]
     Active Substance: GENTAMICIN
  27. XYLOMETAZOLINE HYDROCHLORIDE [Suspect]
     Active Substance: XYLOMETAZOLINE HYDROCHLORIDE

REACTIONS (10)
  - Nausea [Recovered/Resolved]
  - Diarrhoea [Recovered/Resolved]
  - Fatigue [Recovered/Resolved]
  - Mucosal inflammation [Recovered/Resolved]
  - Alopecia [Recovered/Resolved]
  - Sinusitis [Recovered/Resolved]
  - Anaemia [None]
  - COVID-19 [Recovered/Resolved]
  - Dyspnoea exertional [Recovered/Resolved]
  - Thrombocytopenia [Recovered/Resolved]
